FAERS Safety Report 9900156 (Version 2)
Quarter: 2014Q2

REPORT INFORMATION
  Report Type: Report from Study
  Country: JP (occurrence: JP)
  Receive Date: 20140214
  Receipt Date: 20140613
  Transmission Date: 20141212
  Serious: Yes (Hospitalization, Disabling)
  Sender: FDA-Public Use
  Company Number: JP-TAKEDA-2014TJP001520

PATIENT
  Age: 83 Year
  Sex: Male
  Weight: 73 kg

DRUGS (19)
  1. PIOGLITAZONE [Suspect]
     Indication: TYPE 2 DIABETES MELLITUS
     Dosage: 15 MG, UNK
     Route: 048
     Dates: start: 20120411, end: 20130205
  2. PIOGLITAZONE [Suspect]
     Dosage: 30 MG, UNK
     Route: 048
     Dates: start: 20130206
  3. LANTUS [Concomitant]
     Indication: TYPE 2 DIABETES MELLITUS
     Dosage: 12 DF, QD
     Route: 050
     Dates: end: 20120214
  4. LANTUS [Concomitant]
     Dosage: 10 UNK, QD
     Route: 050
     Dates: start: 20120215, end: 20120607
  5. LANTUS [Concomitant]
     Dosage: 8 UNK, QD
     Route: 050
     Dates: start: 20120608, end: 20120611
  6. JANUVIA [Concomitant]
     Indication: TYPE 2 DIABETES MELLITUS
     Dosage: 50 MG, UNK
     Route: 048
  7. METGLUCO [Concomitant]
     Indication: TYPE 2 DIABETES MELLITUS
     Dosage: 500 MG, UNK
     Route: 048
  8. METGLUCO [Concomitant]
     Dosage: 1000 MG, UNK
     Route: 048
     Dates: start: 20120905, end: 20121030
  9. METGLUCO [Concomitant]
     Dosage: 500 MG, UNK
     Route: 048
     Dates: start: 20121031
  10. AMARYL [Concomitant]
     Indication: TYPE 2 DIABETES MELLITUS
     Dosage: 0.5 MG, UNK
     Route: 048
     Dates: start: 20121031
  11. ATELEC [Concomitant]
     Dosage: UNK
     Route: 048
  12. LIPITOR [Concomitant]
     Dosage: UNK
     Route: 048
  13. PLAVIX [Concomitant]
     Dosage: UNK
     Route: 048
  14. PARIET [Concomitant]
     Dosage: UNK
     Route: 048
  15. BAYASPIRIN [Concomitant]
     Dosage: UNK
     Route: 048
  16. FRANDOL TAPE [Concomitant]
     Dosage: UNK
     Route: 062
  17. NITROPEN [Concomitant]
     Dosage: UNK
     Route: 060
  18. OLMETEC [Concomitant]
     Dosage: UNK
     Route: 048
  19. ITOROL [Concomitant]
     Dosage: UNK
     Route: 048

REACTIONS (3)
  - Vitreous haemorrhage [Recovered/Resolved with Sequelae]
  - Coronary artery stenosis [Recovered/Resolved]
  - Hypoglycaemia [Recovered/Resolved]
